FAERS Safety Report 7395243-1 (Version None)
Quarter: 2011Q2

REPORT INFORMATION
  Report Type: 
  Country: None (occurrence: None)
  Receive Date: 20110405
  Receipt Date: 20110404
  Transmission Date: 20111010
  Serious: Yes (Disabling)
  Sender: FDA-Public Use
  Company Number: FI-TEVA-274383ISR

PATIENT
  Age: 64 Year
  Sex: Male

DRUGS (5)
  1. AMLODIPINE [Concomitant]
     Indication: HYPERTENSION
     Route: 048
  2. BISOPROLOL FUMARATE [Concomitant]
     Indication: HYPERTENSION
     Route: 048
  3. SIMVASTATIN [Suspect]
     Indication: HYPERCHOLESTEROLAEMIA
     Route: 048
     Dates: start: 20050101
  4. HYZAAR (COZAAR COMP) [Concomitant]
     Indication: HYPERTENSION
     Dosage: 50 MG/ 12.5 MG
     Route: 048
     Dates: end: 20110301
  5. ASPIRIN AND DIPYRIDAMOLE [Concomitant]
     Dosage: 200 MG/25 MG
     Route: 048

REACTIONS (2)
  - MUSCULOSKELETAL STIFFNESS [None]
  - MUSCULOSKELETAL DISORDER [None]
